FAERS Safety Report 6706222-9 (Version None)
Quarter: 2010Q2

REPORT INFORMATION
  Report Type: 
  Country: None (occurrence: None)
  Receive Date: 20100430
  Receipt Date: 20100430
  Transmission Date: 20101027
  Serious: Yes (Hospitalization)
  Sender: FDA-Public Use
  Company Number: None

PATIENT
  Sex: Female
  Weight: 63.6 kg

DRUGS (2)
  1. CISPLATIN [Suspect]
     Dosage: 110 MG
  2. ETOPOSIDE [Suspect]
     Dosage: 405 MG

REACTIONS (5)
  - BLOOD CULTURE POSITIVE [None]
  - HYPOTENSION [None]
  - PLATELET COUNT DECREASED [None]
  - STAPHYLOCOCCAL INFECTION [None]
  - WHITE BLOOD CELL COUNT DECREASED [None]
